FAERS Safety Report 17420821 (Version 13)
Quarter: 2023Q4

REPORT INFORMATION
  Report Type: Spontaneous
  Country: US (occurrence: US)
  Receive Date: 20200214
  Receipt Date: 20231030
  Transmission Date: 20240110
  Serious: Yes (Other)
  Sender: FDA-Public Use
  Company Number: US-PFIZER INC-2020067034

PATIENT
  Age: 74 Year
  Sex: Female
  Weight: 74.014 kg

DRUGS (27)
  1. BOSULIF [Suspect]
     Active Substance: BOSUTINIB MONOHYDRATE
     Indication: Chronic myeloid leukaemia
     Dosage: 400 MG, TAKE 1 TABLET (400 MG) BY MOUTH ONCE DAILY WITH FOOD
     Route: 048
     Dates: start: 20190315
  2. BOSULIF [Suspect]
     Active Substance: BOSUTINIB MONOHYDRATE
     Dosage: 500 MG, ALTERNATE DAY (500 EVERY 48 DAY (Q84D) MAINTENANCE
     Route: 048
     Dates: start: 20190322, end: 20211124
  3. BOSULIF [Suspect]
     Active Substance: BOSUTINIB MONOHYDRATE
     Dosage: 400 MG (28 DAYS)
     Dates: start: 20201001, end: 20230713
  4. BOSULIF [Suspect]
     Active Substance: BOSUTINIB MONOHYDRATE
     Dosage: 400 MG, DAILY (WITH FOOD)
     Route: 048
     Dates: start: 20230710
  5. BOSULIF [Suspect]
     Active Substance: BOSUTINIB MONOHYDRATE
     Dosage: 400 MG, DAILY (TAKE 4 TABLETS (400MG) BY MOUTH ONCE DAILY WITH FOOD)
     Route: 048
     Dates: start: 20230925
  6. ASPIRIN [Concomitant]
     Active Substance: ASPIRIN
     Dosage: 81 MG, 1X/DAY (IN THE MORNING)
     Route: 048
     Dates: start: 20060101
  7. ATORVASTATIN [Concomitant]
     Active Substance: ATORVASTATIN
     Dosage: 80 MG, 1X/DAY ( (PER ORAL) (EVERY) DAY AT BEDTIME (HS))
     Route: 048
     Dates: start: 20020101
  8. AZITHROMYCIN [AZITHROMYCIN DIHYDRATE] [Concomitant]
     Dosage: 250 MG (TAKE AS DIRECTED)
     Dates: start: 20230806
  9. ELIQUIS [Concomitant]
     Active Substance: APIXABAN
     Dosage: 5 MG, 2X/DAY
     Route: 048
     Dates: start: 20230806
  10. ESOMEPRAZOLE MAGNESIUM [Concomitant]
     Active Substance: ESOMEPRAZOLE\ESOMEPRAZOLE MAGNESIUM\ESOMEPRAZOLE MAGNESIUM DIHYDRATE
     Dosage: 40 MG, 1X/DAY ((EVERY) DAY AT BEDTIME (HS))
     Route: 048
     Dates: start: 20160705
  11. INULIN [Concomitant]
     Active Substance: INULIN
     Dosage: 4 G, DAILY
     Route: 048
     Dates: start: 20210802
  12. LEVOTHYROXINE SODIUM [Concomitant]
     Active Substance: LEVOTHYROXINE SODIUM
     Dosage: 100 UG, DAILY
     Route: 048
     Dates: start: 20210316
  13. LEXAPRO [Concomitant]
     Active Substance: ESCITALOPRAM OXALATE
     Dosage: 20 MG, 1X/DAY (1 P.O. (PER ORAL)Q. (EVERY) DAY AT BEDTIME)
     Route: 048
     Dates: start: 20160705
  14. LORATADINE [Concomitant]
     Active Substance: LORATADINE
     Dosage: 10 MG, DAILY
     Route: 048
     Dates: start: 20160705
  15. METFORMIN [Concomitant]
     Active Substance: METFORMIN HYDROCHLORIDE
     Dosage: 500 MG, 2X/DAY
     Route: 048
     Dates: start: 20010101
  16. MONTELUKAST [Concomitant]
     Active Substance: MONTELUKAST SODIUM
     Dosage: 10 MG, 1X/DAY (1 P.O. (PER ORAL) DAY AT BEDTIME (HS))
     Route: 048
     Dates: start: 20130101
  17. PREDNISONE [Concomitant]
     Active Substance: PREDNISONE
     Dosage: 20 MG, 2X/DAY
     Route: 048
     Dates: start: 20230806
  18. PROAIR HFA [Concomitant]
     Active Substance: ALBUTEROL SULFATE
     Dosage: 2 DF, 4X/DAY (2 PUFFS Q (EVERY) 6 HRS)
     Dates: start: 20130101
  19. SPIRONOLACTONE AND HYDROCHLOROTHIAZIDE [Concomitant]
     Active Substance: HYDROCHLOROTHIAZIDE\SPIRONOLACTONE
     Dosage: 1 DF, DAILY
     Route: 048
     Dates: start: 20130101
  20. STIOLTO RESPIMAT [Concomitant]
     Active Substance: OLODATEROL HYDROCHLORIDE\TIOTROPIUM BROMIDE MONOHYDRATE
     Dosage: 2 DF, DAILY
     Dates: start: 20131007
  21. TORSEMIDE [Concomitant]
     Active Substance: TORSEMIDE
     Dosage: 10 MG, 3X/DAY
     Route: 048
     Dates: start: 20130101
  22. TOUJEO [Concomitant]
     Active Substance: INSULIN GLARGINE
     Dosage: 22 IU, DAILY (22 UNITS EVERY DAY)
     Route: 058
     Dates: start: 20180322
  23. VITAMIN C [Concomitant]
     Active Substance: ASCORBIC ACID
     Dosage: 1000 MG, DAILY
     Route: 048
     Dates: start: 20160705
  24. VITAMIN D3 [Concomitant]
     Active Substance: CHOLECALCIFEROL
     Dosage: 125 UG, DAILY (5,000 UNIT)
     Route: 048
     Dates: start: 20160705
  25. INJECTAFER [Concomitant]
     Active Substance: FERRIC CARBOXYMALTOSE
     Dosage: UNK (CYCLES GIVEN/PLANNED: 1/1)
     Dates: start: 20171107, end: 20180822
  26. INJECTAFER [Concomitant]
     Active Substance: FERRIC CARBOXYMALTOSE
     Dosage: UNK (CYCLES GIVEN/PLANNED: 1/1)
     Dates: start: 20200803, end: 20200810
  27. INJECTAFER [Concomitant]
     Active Substance: FERRIC CARBOXYMALTOSE
     Dosage: UNK (CYCLES GIVEN/PLANNED: 4/7)
     Dates: start: 20210923, end: 20230809

REACTIONS (14)
  - Second primary malignancy [Unknown]
  - Lung neoplasm malignant [Not Recovered/Not Resolved]
  - Thoracic vertebral fracture [Not Recovered/Not Resolved]
  - Knee operation [Not Recovered/Not Resolved]
  - Meniscus operation [Unknown]
  - Pneumonia [Unknown]
  - Gait disturbance [Unknown]
  - Headache [Unknown]
  - Alopecia [Unknown]
  - Nausea [Unknown]
  - Malaise [Unknown]
  - Feeling abnormal [Unknown]
  - Oedema [Unknown]
  - Off label use [Unknown]

NARRATIVE: CASE EVENT DATE: 20190322
